FAERS Safety Report 10481362 (Version 1)
Quarter: 2014Q3

REPORT INFORMATION
  Report Type: Spontaneous
  Country: US (occurrence: US)
  Receive Date: 20140929
  Receipt Date: 20140929
  Transmission Date: 20150326
  Serious: Yes (Hospitalization, Other)
  Sender: FDA-Public Use
  Company Number: US-SA-2014SA131772

PATIENT
  Age: 49 Year
  Sex: Female
  Weight: 110 kg

DRUGS (8)
  1. AMBIEN [Suspect]
     Active Substance: ZOLPIDEM TARTRATE
     Route: 065
  2. LEVEMIR [Concomitant]
     Active Substance: INSULIN DETEMIR
     Indication: DIABETES MELLITUS
     Dosage: DOSE:100 UNIT(S)
     Route: 065
  3. XANAX [Concomitant]
     Active Substance: ALPRAZOLAM
     Indication: ANXIETY
     Route: 065
  4. EFFEXOR [Suspect]
     Active Substance: VENLAFAXINE HYDROCHLORIDE
     Indication: ANTIDEPRESSANT THERAPY
     Route: 048
     Dates: start: 2012
  5. ASPIRIN. [Concomitant]
     Active Substance: ASPIRIN
     Indication: CARDIAC DISORDER
     Route: 065
  6. EFFEXOR [Suspect]
     Active Substance: VENLAFAXINE HYDROCHLORIDE
     Indication: ANTIDEPRESSANT THERAPY
     Route: 048
  7. CRESTOR [Concomitant]
     Active Substance: ROSUVASTATIN CALCIUM
     Indication: BLOOD CHOLESTEROL INCREASED
     Route: 065
  8. MIRALAX [Concomitant]
     Active Substance: POLYETHYLENE GLYCOL 3350

REACTIONS (20)
  - Abdominal pain upper [Unknown]
  - Chest pain [Unknown]
  - Dry mouth [Not Recovered/Not Resolved]
  - Fatigue [Unknown]
  - Hypertension [Unknown]
  - Headache [Not Recovered/Not Resolved]
  - Dizziness [Unknown]
  - Paraesthesia [Unknown]
  - Night sweats [Not Recovered/Not Resolved]
  - Gait disturbance [Unknown]
  - Muscle tightness [Unknown]
  - Drug ineffective [Unknown]
  - Flatulence [Unknown]
  - Chromaturia [Unknown]
  - Faeces pale [Unknown]
  - Mitral valve prolapse [Not Recovered/Not Resolved]
  - Initial insomnia [Not Recovered/Not Resolved]
  - Dyspepsia [Recovered/Resolved]
  - Crying [Unknown]
  - Memory impairment [Not Recovered/Not Resolved]

NARRATIVE: CASE EVENT DATE: 201307
